FAERS Safety Report 9916546 (Version 1)
Quarter: 2014Q1

REPORT INFORMATION
  Report Type: Spontaneous
  Country: ES (occurrence: None)
  Receive Date: 20140219
  Receipt Date: 20140219
  Transmission Date: 20141002
  Serious: Yes (Other)
  Sender: FDA-Public Use
  Company Number: 2014AP001320

PATIENT
  Age: 84 Year
  Sex: Female

DRUGS (2)
  1. FLUCONAZOLE (FLUCONAZOLE) [Suspect]
     Indication: ORAL CANDIDIASIS
     Dosage: 100 MG; CAP_HARD: PO;QD
     Route: 048
     Dates: start: 20140108, end: 20140112
  2. LEVOFLOXACIN (LEVOFLOXACIN) [Suspect]
     Indication: RESPIRATORY TRACT INFECTION
     Dosage: 500 MG; TAB_FILM;PO;QD
     Route: 048
     Dates: start: 20131229, end: 20140108

REACTIONS (2)
  - Hyperbilirubinaemia [None]
  - Thrombocytopenia [None]
